FAERS Safety Report 9206866 (Version 1)
Quarter: 2013Q2

REPORT INFORMATION
  Report Type: Spontaneous
  Country: US (occurrence: None)
  Receive Date: 20130402
  Receipt Date: 20130402
  Transmission Date: 20140414
  Serious: Yes (Death)
  Sender: FDA-Public Use
  Company Number: None

PATIENT
  Age: 56 Year
  Sex: Female

DRUGS (5)
  1. LETAIRIS [Suspect]
     Indication: PULMONARY HYPERTENSION
     Route: 048
  2. ROPINIROLE [Concomitant]
  3. ONDANSETRON [Concomitant]
  4. MORPHINE [Concomitant]
  5. LORAZEPAM [Concomitant]

REACTIONS (2)
  - Hypotension [None]
  - Asthenia [None]
